FAERS Safety Report 4838704-9 (Version None)
Quarter: 2005Q4

REPORT INFORMATION
  Report Type: 
  Country: None (occurrence: None)
  Receive Date: 20051129
  Receipt Date: 20050908
  Transmission Date: 20060501
  Serious: No
  Sender: FDA-Public Use
  Company Number: US-GLAXOSMITHKLINE-A0573418A

PATIENT
  Age: 43 Year
  Sex: Female

DRUGS (2)
  1. COMMIT [Suspect]
     Dates: end: 20050907
  2. KLONOPIN [Concomitant]

REACTIONS (5)
  - ABSCESS [None]
  - DYSPHAGIA [None]
  - MOUTH HAEMORRHAGE [None]
  - PHARYNGOLARYNGEAL PAIN [None]
  - THROAT IRRITATION [None]
